FAERS Safety Report 4761350-2 (Version None)
Quarter: 2005Q3

REPORT INFORMATION
  Report Type: 
  Country: None (occurrence: None)
  Receive Date: 20050901
  Receipt Date: 20050406
  Transmission Date: 20060218
  Serious: Yes (Hospitalization)
  Sender: FDA-Public Use
  Company Number: 2005-FR-00260

PATIENT
  Age: 74 Year
  Sex: Female

DRUGS (5)
  1. ASPIRIN [Suspect]
     Dosage: 75 MG
     Dates: start: 20050207, end: 20050208
  2. PLENDIL [Concomitant]
  3. TEVETEN [Concomitant]
  4. FLUOXETINE [Concomitant]
  5. FUROSEMIDE [Concomitant]

REACTIONS (1)
  - GASTRITIS HAEMORRHAGIC [None]
